FAERS Safety Report 16871443 (Version 1)
Quarter: 2019Q4

REPORT INFORMATION
  Report Type: Spontaneous
  Country: US (occurrence: US)
  Receive Date: 20190930
  Receipt Date: 20190930
  Transmission Date: 20200122
  Serious: Yes (Other)
  Sender: FDA-Public Use
  Company Number: None

PATIENT
  Age: 42 Year
  Sex: Male
  Weight: 144 kg

DRUGS (1)
  1. BYDUREON [Suspect]
     Active Substance: EXENATIDE
     Indication: DIABETES MELLITUS
     Dosage: ?          QUANTITY:1 INJECTION(S);OTHER FREQUENCY:WEEKLY;OTHER ROUTE:SUB Q?
     Dates: start: 20190801, end: 20190929

REACTIONS (4)
  - Injection site swelling [None]
  - Injection site bruising [None]
  - Injection site pruritus [None]
  - Injection site oedema [None]

NARRATIVE: CASE EVENT DATE: 20190927
